FAERS Safety Report 24979155 (Version 1)
Quarter: 2025Q1

REPORT INFORMATION
  Report Type: Report from Study
  Country: CN (occurrence: CN)
  Receive Date: 20250218
  Receipt Date: 20250218
  Transmission Date: 20250409
  Serious: Yes (Hospitalization, Other)
  Sender: JOHNSON AND JOHNSON
  Company Number: CN-JNJFOC-20250209527

PATIENT

DRUGS (2)
  1. GUSELKUMAB [Suspect]
     Active Substance: GUSELKUMAB
     Indication: Psoriasis
  2. GUSELKUMAB [Suspect]
     Active Substance: GUSELKUMAB

REACTIONS (9)
  - Viral pericarditis [Unknown]
  - Tracheomalacia [Unknown]
  - Infection [Unknown]
  - Benign neoplasm [Unknown]
  - Hepatobiliary disease [Unknown]
  - Eczema nummular [Unknown]
  - Injection site plaque [Unknown]
  - Erythrodermic psoriasis [Unknown]
  - Respiratory disorder [Unknown]
